FAERS Safety Report 10299601 (Version 6)
Quarter: 2016Q4

REPORT INFORMATION
  Report Type: Spontaneous
  Country: AU (occurrence: AU)
  Receive Date: 20140711
  Receipt Date: 20161130
  Transmission Date: 20170206
  Serious: Yes (Hospitalization, Other)
  Sender: FDA-Public Use
  Company Number: AU-NAPPMUNDI-GBR-2014-0019072

PATIENT
  Age: 29 Year
  Sex: Female

DRUGS (4)
  1. PARACETAMOL [Concomitant]
     Active Substance: ACETAMINOPHEN
  2. MEGAFOL [Concomitant]
     Active Substance: FOLIC ACID
  3. OXYCONTIN [Suspect]
     Active Substance: OXYCODONE HYDROCHLORIDE
     Indication: PRODUCT USED FOR UNKNOWN INDICATION
     Dosage: UNK
     Route: 042
     Dates: start: 201404
  4. PRISTIQ EXTENDED-RELEASE [Concomitant]
     Active Substance: DESVENLAFAXINE SUCCINATE
     Dosage: 20 MG, UNK

REACTIONS (9)
  - Vomiting [Unknown]
  - Thrombotic thrombocytopenic purpura [Recovered/Resolved]
  - Vision blurred [Unknown]
  - Renal failure [Recovered/Resolved]
  - Drug abuse [Unknown]
  - Microangiopathic haemolytic anaemia [Recovered/Resolved]
  - Incorrect route of drug administration [Unknown]
  - Nausea [Unknown]
  - Headache [Unknown]

NARRATIVE: CASE EVENT DATE: 201404
